FAERS Safety Report 8500057-2 (Version None)
Quarter: 2012Q3

REPORT INFORMATION
  Report Type: 
  Country: None (occurrence: None)
  Receive Date: 20120710
  Receipt Date: 20120705
  Transmission Date: 20120928
  Serious: Yes (Other)
  Sender: FDA-Public Use
  Company Number: US-BAYER-2012-067926

PATIENT
  Age: 25 Year
  Sex: Female

DRUGS (2)
  1. DROSPIRENONE AND ETHINYL ESTRADIOL [Suspect]
     Dosage: UNK
     Dates: start: 20080701, end: 20110201
  2. YASMIN [Suspect]
     Dosage: UNK
     Dates: start: 20080101, end: 20080701

REACTIONS (2)
  - INJURY [None]
  - MESENTERIC VEIN THROMBOSIS [None]
